FAERS Safety Report 10417541 (Version 1)
Quarter: 2014Q3

REPORT INFORMATION
  Report Type: Spontaneous
  Country: US (occurrence: ZA)
  Receive Date: 20140829
  Receipt Date: 20140829
  Transmission Date: 20150326
  Serious: Yes (Other)
  Sender: FDA-Public Use
  Company Number: US-CIPLA LTD.-2014ZA01189

PATIENT

DRUGS (12)
  1. ABACAVIR [Suspect]
     Active Substance: ABACAVIR
     Indication: HIV INFECTION
     Dosage: UNK
  2. EMTRICITABINE [Suspect]
     Active Substance: EMTRICITABINE
     Indication: HIV INFECTION
     Dosage: UNK
  3. LAMIVUDINE. [Suspect]
     Active Substance: LAMIVUDINE
     Indication: HIV INFECTION
  4. TENOFOVIR DISOPROXIL FUMARATE [Suspect]
     Active Substance: TENOFOVIR DISOPROXIL FUMARATE
     Indication: HIV INFECTION
     Dosage: UNK
  5. ZIDOVUDINE. [Suspect]
     Active Substance: ZIDOVUDINE
     Indication: HIV INFECTION
     Dosage: UNK
  6. NEVIRAPINE. [Suspect]
     Active Substance: NEVIRAPINE
     Indication: HIV INFECTION
     Dosage: UNK
  7. LOPINAVIR AND  RITONAVIR [Suspect]
     Active Substance: LOPINAVIR\RITONAVIR
     Indication: HIV INFECTION
     Dosage: UNK
  8. SAQUINAVIR [Suspect]
     Active Substance: SAQUINAVIR
     Indication: HIV INFECTION
  9. STAVUDINE. [Suspect]
     Active Substance: STAVUDINE
     Indication: HIV INFECTION
     Dosage: UNK
  10. EFAVIRENZ [Suspect]
     Active Substance: EFAVIRENZ
     Indication: HIV INFECTION
     Dosage: UNK
  11. DIDANOSINE. [Suspect]
     Active Substance: DIDANOSINE
     Indication: HIV INFECTION
  12. INDINAVIR [Suspect]
     Active Substance: INDINAVIR
     Indication: HIV INFECTION

REACTIONS (1)
  - Foetal malpresentation [Unknown]
